FAERS Safety Report 12583344 (Version 6)
Quarter: 2016Q4

REPORT INFORMATION
  Report Type: Report from Study
  Country: US (occurrence: US)
  Receive Date: 20160722
  Receipt Date: 20161004
  Transmission Date: 20170207
  Serious: Yes (Hospitalization)
  Sender: FDA-Public Use
  Company Number: PHHY2016US096341

PATIENT
  Age: 57 Year
  Sex: Male

DRUGS (2)
  1. CERTICAN [Suspect]
     Active Substance: EVEROLIMUS
     Indication: RENAL TRANSPLANT
     Dosage: 3.5 MG, QD
     Route: 048
     Dates: start: 20160618, end: 20160705
  2. BELATACEPT [Suspect]
     Active Substance: BELATACEPT
     Indication: RENAL TRANSPLANT
     Dosage: 937.5 MG, QD
     Route: 042
     Dates: start: 20160617

REACTIONS (4)
  - Renal tubular necrosis [Not Recovered/Not Resolved]
  - Cholecystitis acute [Not Recovered/Not Resolved]
  - Ureteral necrosis [Recovered/Resolved]
  - Intra-abdominal haematoma [Recovered/Resolved]

NARRATIVE: CASE EVENT DATE: 20160624
